FAERS Safety Report 21722606 (Version 2)
Quarter: 2023Q1

REPORT INFORMATION
  Report Type: Spontaneous
  Country: US (occurrence: US)
  Receive Date: 20221213
  Receipt Date: 20230228
  Transmission Date: 20230418
  Serious: No
  Sender: FDA-Public Use
  Company Number: US-PFIZER INC-202201359608

PATIENT
  Age: 62 Year
  Sex: Female
  Weight: 76.2 kg

DRUGS (2)
  1. PAXLOVID [Suspect]
     Active Substance: NIRMATRELVIR\RITONAVIR
     Indication: COVID-19 treatment
     Dosage: 3 DF, 2X/DAY [PF-07321332 300 MG]/[RITONAVIR 100 MG]; 2X/DAY
     Dates: start: 20221130, end: 20221205
  2. ZITHROMAX [Concomitant]
     Active Substance: AZITHROMYCIN DIHYDRATE
     Indication: Sinusitis
     Dosage: 500MG (2 PILLS) FOR FIRST DOSE, THEN REMAINING 4 DAYS WERE 250MG EACH
     Dates: start: 20221114, end: 20221119

REACTIONS (7)
  - Paranasal sinus discomfort [Recovering/Resolving]
  - Headache [Recovering/Resolving]
  - Feeling abnormal [Unknown]
  - Dysgeusia [Recovered/Resolved]
  - Dysuria [Recovered/Resolved]
  - Chromaturia [Recovered/Resolved]
  - Dyspepsia [Unknown]

NARRATIVE: CASE EVENT DATE: 20221130
